FAERS Safety Report 6580054-7 (Version None)
Quarter: 2010Q1

REPORT INFORMATION
  Report Type: 
  Country: None (occurrence: None)
  Receive Date: 20100212
  Receipt Date: 20100201
  Transmission Date: 20100710
  Serious: Yes (Other)
  Sender: FDA-Public Use
  Company Number: CA-WATSON-2010-01318

PATIENT
  Age: 72 Year
  Sex: Female

DRUGS (1)
  1. METRONIDAZOLE [Suspect]
     Indication: ABDOMINAL ABSCESS
     Dosage: 500 MG, BID

REACTIONS (3)
  - ATAXIA [None]
  - CEREBELLAR SYNDROME [None]
  - DYSARTHRIA [None]
